FAERS Safety Report 20842903 (Version 1)
Quarter: 2022Q2

REPORT INFORMATION
  Report Type: Spontaneous
  Country: US (occurrence: US)
  Receive Date: 20220518
  Receipt Date: 20220518
  Transmission Date: 20220721
  Serious: No
  Sender: FDA-Public Use
  Company Number: US-BIOGEN-2022BI01110945

PATIENT
  Sex: Female

DRUGS (1)
  1. TECFIDERA [Suspect]
     Active Substance: DIMETHYL FUMARATE
     Indication: Product used for unknown indication
     Route: 065
     Dates: start: 20180109

REACTIONS (4)
  - Temperature intolerance [Unknown]
  - Photosensitivity reaction [Unknown]
  - Hypersensitivity [Unknown]
  - Flushing [Recovered/Resolved]
